FAERS Safety Report 24927369 (Version 2)
Quarter: 2025Q1

REPORT INFORMATION
  Report Type: Spontaneous
  Country: US (occurrence: US)
  Receive Date: 20250205
  Receipt Date: 20250328
  Transmission Date: 20250409
  Serious: Yes (Other)
  Sender: BRISTOL-MYERS SQUIBB COMPANY
  Company Number: US-BRISTOL-MYERS SQUIBB COMPANY-2025-017169

PATIENT
  Age: 71 Year
  Sex: Male

DRUGS (1)
  1. REVLIMID [Suspect]
     Active Substance: LENALIDOMIDE
     Indication: Follicular lymphoma
     Dosage: QD FOR 21 DAYS THEN 7 DAYS OFF
     Route: 048

REACTIONS (3)
  - Diarrhoea [Unknown]
  - Nausea [Unknown]
  - Thrombocytopenia [Unknown]
